FAERS Safety Report 5027100-X (Version None)
Quarter: 2006Q2

REPORT INFORMATION
  Report Type: 
  Country: None (occurrence: None)
  Receive Date: 20060615
  Receipt Date: 20050621
  Transmission Date: 20061013
  Serious: No
  Sender: FDA-Public Use
  Company Number: US-BRISTOL-MYERS SQUIBB COMPANY-13010822

PATIENT
  Age: 65 Year
  Sex: Female
  Weight: 91 kg

DRUGS (6)
  1. MONOPRIL-HCT [Suspect]
     Indication: HYPERTENSION
  2. ZETIA [Concomitant]
  3. CRESTOR [Concomitant]
  4. COENZYME Q10 [Concomitant]
  5. POTASSIUM [Concomitant]
  6. FUROSEMIDE [Concomitant]

REACTIONS (1)
  - HYPERTENSION [None]
